FAERS Safety Report 10234616 (Version 3)
Quarter: 2015Q2

REPORT INFORMATION
  Report Type: Report from Study
  Country: AU (occurrence: AU)
  Receive Date: 20140613
  Receipt Date: 20150408
  Transmission Date: 20150821
  Serious: Yes (Hospitalization, Other)
  Sender: FDA-Public Use
  Company Number: AU-ROCHE-1417643

PATIENT
  Age: 69 Year
  Sex: Female

DRUGS (1)
  1. ACTEMRA [Suspect]
     Active Substance: TOCILIZUMAB
     Indication: RHEUMATOID ARTHRITIS
     Route: 042
     Dates: start: 20100331, end: 20150401

REACTIONS (7)
  - Joint effusion [Unknown]
  - Pain [Recovering/Resolving]
  - Localised infection [Not Recovered/Not Resolved]
  - International normalised ratio increased [Unknown]
  - Arthritis bacterial [Unknown]
  - Joint swelling [Recovering/Resolving]
  - Leg amputation [Recovered/Resolved]

NARRATIVE: CASE EVENT DATE: 20140603
